FAERS Safety Report 16507369 (Version 3)
Quarter: 2019Q4

REPORT INFORMATION
  Report Type: Spontaneous
  Country: US (occurrence: US)
  Receive Date: 20190701
  Receipt Date: 20191002
  Transmission Date: 20200122
  Serious: No
  Sender: FDA-Public Use
  Company Number: US-PFIZER INC-2019280898

PATIENT
  Age: 74 Year
  Sex: Female

DRUGS (1)
  1. SUTENT [Suspect]
     Active Substance: SUNITINIB MALATE
     Indication: GASTROINTESTINAL CARCINOMA
     Dosage: 50 MG, UNK

REACTIONS (6)
  - Tumour marker increased [Unknown]
  - Malaise [Unknown]
  - Nausea [Unknown]
  - Hypersomnia [Unknown]
  - Back pain [Unknown]
  - Musculoskeletal chest pain [Unknown]
